FAERS Safety Report 8255556-8 (Version None)
Quarter: 2012Q2

REPORT INFORMATION
  Report Type: 
  Country: None (occurrence: None)
  Receive Date: 20120403
  Receipt Date: 20120322
  Transmission Date: 20120825
  Serious: Yes (Life-Threatening, Hospitalization)
  Sender: FDA-Public Use
  Company Number: JP-ASTRAZENECA-2012SE21061

PATIENT

DRUGS (1)
  1. MEROPENEM [Suspect]
     Route: 042
     Dates: start: 20120301

REACTIONS (1)
  - ANAPHYLACTIC SHOCK [None]
